FAERS Safety Report 12242714 (Version 1)
Quarter: 2016Q2

REPORT INFORMATION
  Report Type: Spontaneous
  Country: US (occurrence: US)
  Receive Date: 20160406
  Receipt Date: 20160406
  Transmission Date: 20160815
  Serious: Yes (Hospitalization, Other)
  Sender: FDA-Public Use
  Company Number: US-PFIZER INC-2016189151

PATIENT
  Sex: Male

DRUGS (1)
  1. LYRICA [Suspect]
     Active Substance: PREGABALIN
     Dosage: UNK

REACTIONS (8)
  - Paralysis [Unknown]
  - Apparent death [Unknown]
  - Brachial plexus injury [Unknown]
  - Limb injury [Unknown]
  - Emotional disorder [Unknown]
  - Road traffic accident [Unknown]
  - Lung disorder [Unknown]
  - Sedation [Unknown]
